FAERS Safety Report 14582119 (Version 2)
Quarter: 2018Q2

REPORT INFORMATION
  Report Type: Spontaneous
  Country: PT (occurrence: PT)
  Receive Date: 20180228
  Receipt Date: 20180409
  Transmission Date: 20180711
  Serious: Yes (Death, Other)
  Sender: FDA-Public Use
  Company Number: PT-SA-2018SA030057

PATIENT
  Age: 67 Year
  Sex: Female

DRUGS (10)
  1. FLUOROURACIL. [Suspect]
     Active Substance: FLUOROURACIL
     Indication: INVASIVE DUCTAL BREAST CARCINOMA
     Dosage: UNK UNK, EVERY 3 WEEKS, 3 CYCLES
     Route: 065
     Dates: start: 2014
  2. FLUOROURACIL. [Suspect]
     Active Substance: FLUOROURACIL
     Indication: INVASIVE DUCTAL BREAST CARCINOMA
     Dosage: UNK UNK, EVERY 3 WEEKS, 3 CYCLES
     Route: 065
  3. CYCLOPHOSPHAMIDE. [Suspect]
     Active Substance: CYCLOPHOSPHAMIDE
     Indication: INVASIVE DUCTAL BREAST CARCINOMA
     Dosage: UNK UNK, EVERY 3 WEEKS, 3 CYCLES
     Route: 065
     Dates: start: 2014
  4. EPIRUBICIN HYDROCHLORIDE. [Suspect]
     Active Substance: EPIRUBICIN HYDROCHLORIDE
     Indication: INVASIVE DUCTAL BREAST CARCINOMA
     Dosage: UNK UNK, EVERY 3 WEEKS, 3 CYCLES
     Route: 065
  5. EPIRUBICIN HYDROCHLORIDE. [Suspect]
     Active Substance: EPIRUBICIN HYDROCHLORIDE
     Indication: INVASIVE DUCTAL BREAST CARCINOMA
     Dosage: UNK UNK, EVERY 3 WEEKS, 3 CYCLES
     Route: 065
     Dates: start: 2014
  6. DOCETAXEL. [Suspect]
     Active Substance: DOCETAXEL
     Indication: INVASIVE DUCTAL BREAST CARCINOMA
     Dosage: UNK UNK, EVERY 3 WEEKS (3 CYCLES), INFUSION
     Route: 065
     Dates: start: 2014
  7. CAPECITABINE. [Concomitant]
     Active Substance: CAPECITABINE
  8. ANASTROZOLE. [Suspect]
     Active Substance: ANASTROZOLE
     Indication: INVASIVE DUCTAL BREAST CARCINOMA
     Route: 048
  9. DOCETAXEL. [Suspect]
     Active Substance: DOCETAXEL
     Indication: INVASIVE DUCTAL BREAST CARCINOMA
     Dosage: UNK UNK, EVERY 3 WEEKS (3 CYCLES)
     Route: 065
  10. CYCLOPHOSPHAMIDE. [Suspect]
     Active Substance: CYCLOPHOSPHAMIDE
     Indication: INVASIVE DUCTAL BREAST CARCINOMA
     Dosage: UNK UNK, EVERY 3 WEEKS, 3 CYCLES
     Route: 065

REACTIONS (5)
  - Rash generalised [Recovered/Resolved]
  - Metastases to pleura [Fatal]
  - Psoriasis [Recovered/Resolved]
  - Skin exfoliation [Recovered/Resolved]
  - Metastases to lymph nodes [Fatal]

NARRATIVE: CASE EVENT DATE: 2014
